FAERS Safety Report 5304404-4 (Version None)
Quarter: 2007Q2

REPORT INFORMATION
  Report Type: 
  Country: None (occurrence: None)
  Receive Date: 20070416
  Receipt Date: 20070404
  Transmission Date: 20071010
  Serious: Yes (Death)
  Sender: FDA-Public Use
  Company Number: FSC_0029_2007

PATIENT
  Age: 79 Year
  Sex: Male

DRUGS (9)
  1. VASOLAN [Suspect]
     Indication: ATRIAL FIBRILLATION
     Dosage: 10 MG ONCE IV
     Route: 042
     Dates: start: 20060428, end: 20060401
  2. VASOLAN [Suspect]
     Indication: TACHYCARDIA
     Dosage: 10 MG ONCE IV
     Route: 042
     Dates: start: 20060428, end: 20060401
  3. VASOLAN [Suspect]
     Indication: ATRIAL FIBRILLATION
     Dosage: 10 MG ONCE IV
     Route: 042
     Dates: start: 20070501, end: 20070501
  4. VASOLAN [Suspect]
     Indication: TACHYCARDIA
     Dosage: 10 MG ONCE IV
     Route: 042
     Dates: start: 20070501, end: 20070501
  5. DORMICUM [Suspect]
     Indication: RESTLESSNESS
     Dosage: 20 MG CON IV
     Route: 042
     Dates: start: 20060427, end: 20060428
  6. DORMICUM [Suspect]
     Indication: RESTLESSNESS
     Dosage: DF UNK IV
     Route: 042
     Dates: start: 20060428
  7. DORMICUM [Suspect]
     Indication: RESTLESSNESS
     Dosage: DF UNK IV
     Route: 042
     Dates: start: 20060501, end: 20060501
  8. HYDROXYZINE HYDROCHLORIDE [Concomitant]
  9. HALOPERIDOL [Concomitant]

REACTIONS (24)
  - AGGRESSION [None]
  - AGITATION [None]
  - ASPARTATE AMINOTRANSFERASE INCREASED [None]
  - ATRIAL FIBRILLATION [None]
  - BLOOD ALKALINE PHOSPHATASE INCREASED [None]
  - BLOOD CREATINE PHOSPHOKINASE INCREASED [None]
  - BLOOD LACTATE DEHYDROGENASE INCREASED [None]
  - BLOOD PRESSURE DECREASED [None]
  - BLOOD URINE PRESENT [None]
  - CARDIO-RESPIRATORY ARREST [None]
  - DRUG INTERACTION [None]
  - DRUG LEVEL INCREASED [None]
  - ELECTROCARDIOGRAM QRS COMPLEX SHORTENED [None]
  - ELECTROMECHANICAL DISSOCIATION [None]
  - EMOTIONAL DISORDER [None]
  - HAEMOGLOBIN DECREASED [None]
  - METABOLIC ACIDOSIS [None]
  - POOR QUALITY SLEEP [None]
  - RESPIRATORY ACIDOSIS [None]
  - RESPIRATORY ARREST [None]
  - RESTLESSNESS [None]
  - SNORING [None]
  - URETHRAL INJURY [None]
  - VENTRICULAR HYPOKINESIA [None]
